FAERS Safety Report 4745752-6 (Version None)
Quarter: 2005Q3

REPORT INFORMATION
  Report Type: 
  Country: None (occurrence: None)
  Receive Date: 20050816
  Receipt Date: 20050601
  Transmission Date: 20060218
  Serious: Yes (Other)
  Sender: FDA-Public Use
  Company Number: PHEH2005US06277

PATIENT
  Age: 67 Year
  Sex: Female

DRUGS (2)
  1. ZOMETA [Suspect]
     Indication: METASTASES TO BONE
     Dosage: 4 MG, QW3
     Route: 042
     Dates: start: 20031101
  2. HERCEPTIN [Concomitant]

REACTIONS (7)
  - BRAIN NEOPLASM [None]
  - DENTAL CARIES [None]
  - ENDODONTIC PROCEDURE [None]
  - MALIGNANT NEOPLASM PROGRESSION [None]
  - TOOTH DISORDER [None]
  - TOOTH FRACTURE [None]
  - TOOTHACHE [None]
